FAERS Safety Report 4758032-X (Version None)
Quarter: 2005Q3

REPORT INFORMATION
  Report Type: 
  Country: None (occurrence: None)
  Receive Date: 20050826
  Receipt Date: 20050509
  Transmission Date: 20060218
  Serious: No
  Sender: FDA-Public Use
  Company Number: WAES 0502USA02299

PATIENT
  Age: 50 Year
  Sex: Female

DRUGS (3)
  1. ZETIA [Suspect]
     Dosage: 10 MG/PO
     Route: 048
  2. TRAZODONE HCL [Concomitant]
  3. TRIAMTERENE [Concomitant]

REACTIONS (4)
  - BLOOD CHOLESTEROL INCREASED [None]
  - BLOOD TRIGLYCERIDES INCREASED [None]
  - JAUNDICE CHOLESTATIC [None]
  - TRANSAMINASES INCREASED [None]
